FAERS Safety Report 24815298 (Version 1)
Quarter: 2025Q1

REPORT INFORMATION
  Report Type: Spontaneous
  Country: US (occurrence: US)
  Receive Date: 20250107
  Receipt Date: 20250107
  Transmission Date: 20250409
  Serious: No
  Sender: BRISTOL-MYERS SQUIBB COMPANY
  Company Number: US-BRISTOL-MYERS SQUIBB COMPANY-2025-000979

PATIENT
  Age: 52 Year
  Sex: Female

DRUGS (1)
  1. ORENCIA [Suspect]
     Active Substance: ABATACEPT
     Indication: Rheumatoid arthritis
     Dosage: FREQUENCY/DOSE250MG: INFUSE 1,000 MG INTRAVENOUSLY AT WEEK 0, 2, 4, THEN EVERY 4 WEEKS THEREAFTER.
     Route: 042
     Dates: start: 202410

REACTIONS (1)
  - Adverse event [Unknown]
